FAERS Safety Report 9676304 (Version 1)
Quarter: 2013Q4

REPORT INFORMATION
  Report Type: Spontaneous
  Country: FR (occurrence: FR)
  Receive Date: 20131107
  Receipt Date: 20131107
  Transmission Date: 20140711
  Serious: Yes (Life-Threatening)
  Sender: FDA-Public Use
  Company Number: FR-B.I. PHARMACEUTICALS,INC./RIDGEFIELD-2013-FF-02648FF

PATIENT
  Age: 64 Year
  Sex: Female

DRUGS (8)
  1. SPIRIVA [Suspect]
     Route: 055
  2. SEROPLEX [Suspect]
     Indication: DEPRESSION
     Dates: start: 20130803, end: 20130820
  3. HALDOL [Concomitant]
     Indication: PSYCHOTIC DISORDER
     Route: 048
     Dates: start: 20130801
  4. SULFARLEM [Concomitant]
     Route: 048
     Dates: start: 20130801, end: 20130815
  5. LEPTICUR [Concomitant]
     Route: 048
     Dates: start: 20130801, end: 20130815
  6. MIFLONIL [Concomitant]
     Indication: ASTHMA
     Route: 055
  7. ONBREZ BREEZHALER [Concomitant]
     Indication: CHRONIC OBSTRUCTIVE PULMONARY DISEASE
     Route: 055
  8. ONBREZ BREEZHALER [Concomitant]
     Route: 048

REACTIONS (1)
  - Inappropriate antidiuretic hormone secretion [Recovered/Resolved]
